FAERS Safety Report 20616198 (Version 1)
Quarter: 2022Q1

REPORT INFORMATION
  Report Type: Spontaneous
  Country: US (occurrence: None)
  Receive Date: 20220318
  Receipt Date: 20220318
  Transmission Date: 20220424
  Serious: Yes (Other)
  Sender: FDA-Public Use
  Company Number: None

PATIENT
  Age: 65 Year
  Sex: Male
  Weight: 99 kg

DRUGS (1)
  1. EVUSHELD [Suspect]
     Active Substance: CILGAVIMAB\TIXAGEVIMAB
     Route: 030
     Dates: start: 20220317, end: 20220317

REACTIONS (6)
  - Nasal congestion [None]
  - Cough [None]
  - Pain [None]
  - Fatigue [None]
  - Arthralgia [None]
  - Injection site pain [None]

NARRATIVE: CASE EVENT DATE: 20220318
